FAERS Safety Report 15097569 (Version 2)
Quarter: 2018Q3

REPORT INFORMATION
  Report Type: Report from Study
  Country: US (occurrence: US)
  Receive Date: 20180702
  Receipt Date: 20180718
  Transmission Date: 20181010
  Serious: Yes (Hospitalization, Other)
  Sender: FDA-Public Use
  Company Number: US-SA-2017SA180598

PATIENT
  Age: 22 Year
  Sex: Male

DRUGS (1)
  1. TERIFLUNOMIDE [Suspect]
     Active Substance: TERIFLUNOMIDE
     Indication: MULTIPLE SCLEROSIS
     Dosage: 7 MG,QD
     Route: 048
     Dates: start: 20170920, end: 20171201

REACTIONS (23)
  - Crying [Not Recovered/Not Resolved]
  - Dizziness [Not Recovered/Not Resolved]
  - Condition aggravated [Not Recovered/Not Resolved]
  - Multiple sclerosis [Not Recovered/Not Resolved]
  - Memory impairment [Not Recovered/Not Resolved]
  - Limb injury [Unknown]
  - Hypoaesthesia [Not Recovered/Not Resolved]
  - General physical health deterioration [Not Recovered/Not Resolved]
  - Multiple sclerosis [Not Recovered/Not Resolved]
  - Fine motor skill dysfunction [Not Recovered/Not Resolved]
  - Drug ineffective [Unknown]
  - Multiple sclerosis relapse [Not Recovered/Not Resolved]
  - Pyrexia [Unknown]
  - Gait disturbance [Not Recovered/Not Resolved]
  - Limb discomfort [Not Recovered/Not Resolved]
  - Vision blurred [Not Recovered/Not Resolved]
  - Stress [Not Recovered/Not Resolved]
  - Insomnia [Not Recovered/Not Resolved]
  - Visual impairment [Not Recovered/Not Resolved]
  - Tremor [Not Recovered/Not Resolved]
  - Vomiting [Not Recovered/Not Resolved]
  - Asthenia [Not Recovered/Not Resolved]
  - Fall [Not Recovered/Not Resolved]

NARRATIVE: CASE EVENT DATE: 2017
